FAERS Safety Report 4423420-8 (Version None)
Quarter: 2004Q3

REPORT INFORMATION
  Report Type: 
  Country: None (occurrence: None)
  Receive Date: 20040806
  Receipt Date: 20040722
  Transmission Date: 20050211
  Serious: Yes (Death)
  Sender: FDA-Public Use
  Company Number: 2004S1001925

PATIENT
  Age: 78 Year
  Sex: Male

DRUGS (1)
  1. CLOZAPINE [Suspect]
     Dosage: 75MG Q HS ORAL
     Route: 048
     Dates: start: 20031125

REACTIONS (1)
  - DEATH [None]
